FAERS Safety Report 5796880-8 (Version None)
Quarter: 2008Q2

REPORT INFORMATION
  Report Type: 
  Country: None (occurrence: None)
  Receive Date: 20080618
  Receipt Date: 20070509
  Transmission Date: 20081010
  Serious: Yes (Hospitalization, Other)
  Sender: FDA-Public Use
  Company Number: 200713382US

PATIENT
  Age: 39 Year
  Sex: Female

DRUGS (1)
  1. LANTUS [Suspect]
     Indication: TYPE 1 DIABETES MELLITUS
     Dosage: INJ
     Dates: start: 20061201

REACTIONS (6)
  - ABASIA [None]
  - ASTHENIA [None]
  - DYSGEUSIA [None]
  - HYPERGLYCAEMIA [None]
  - INFECTION [None]
  - WEIGHT DECREASED [None]
